FAERS Safety Report 11220707 (Version 1)
Quarter: 2015Q2

REPORT INFORMATION
  Report Type: Spontaneous
  Country: US (occurrence: None)
  Receive Date: 20150625
  Receipt Date: 20150625
  Transmission Date: 20150821
  Serious: Yes (Hospitalization)
  Sender: FDA-Public Use
  Company Number: None

PATIENT
  Age: 58 Year
  Sex: Male
  Weight: 77.4 kg

DRUGS (2)
  1. AMILORIDE [Suspect]
     Active Substance: AMILORIDE
     Indication: HYPOKALAEMIA
     Route: 048
     Dates: start: 20150227, end: 20150311
  2. POTASSIUM CHLORIDE. [Suspect]
     Active Substance: POTASSIUM CHLORIDE
     Indication: HYPOKALAEMIA
     Route: 048
     Dates: start: 20141205, end: 20150311

REACTIONS (5)
  - Hyperkalaemia [None]
  - Blood glucose increased [None]
  - Drug administration error [None]
  - Treatment noncompliance [None]
  - Electrocardiogram T wave peaked [None]

NARRATIVE: CASE EVENT DATE: 20150311
